FAERS Safety Report 19463466 (Version 2)
Quarter: 2021Q3

REPORT INFORMATION
  Report Type: Spontaneous
  Country: GB (occurrence: GB)
  Receive Date: 20210625
  Receipt Date: 20210917
  Transmission Date: 20211014
  Serious: Yes (Hospitalization, Other)
  Sender: FDA-Public Use
  Company Number: GB-PFIZER INC-2021693068

PATIENT
  Age: 53 Year
  Sex: Male
  Weight: 125.1 kg

DRUGS (34)
  1. GEMCITABINE HYDROCHLORIDE. [Suspect]
     Active Substance: GEMCITABINE HYDROCHLORIDE
     Indication: UNDIFFERENTIATED SARCOMA
     Dosage: DOSE: 1710 MILLIGRAM, FREQUENCY:D1
     Route: 042
     Dates: start: 20210304, end: 20210304
  2. OXYCONTIN [Suspect]
     Active Substance: OXYCODONE HYDROCHLORIDE
     Dosage: 30 MILLIGRAM, ONCE
     Route: 048
     Dates: start: 20201105
  3. OXYCONTIN [Suspect]
     Active Substance: OXYCODONE HYDROCHLORIDE
     Dosage: UNK
     Dates: start: 20201105
  4. GABAPENTIN. [Concomitant]
     Active Substance: GABAPENTIN
     Indication: NEURALGIA
     Dosage: BID
     Route: 048
     Dates: start: 20201125, end: 20201127
  5. PETROLATUM. [Concomitant]
     Active Substance: PETROLATUM
     Indication: RASH
     Dosage: 3X/DAY (TID)
     Route: 061
     Dates: start: 20201123, end: 2021
  6. E45 [Concomitant]
     Active Substance: LANOLIN\LIGHT MINERAL OIL\PARAFFIN
  7. OXYCONTIN [Suspect]
     Active Substance: OXYCODONE HYDROCHLORIDE
     Indication: PAIN
     Dosage: 40 MILLIGRAM, ONCE
     Dates: start: 20210224
  8. LANOLIN. [Concomitant]
     Active Substance: LANOLIN
     Indication: RASH
     Dosage: 3X/DAY (TID)
     Route: 061
     Dates: start: 20201123, end: 2021
  9. FUROSEMIDE. [Suspect]
     Active Substance: FUROSEMIDE
     Indication: CORONARY ARTERY DISEASE
     Dosage: 20 MILLIGRAM, QD
     Route: 048
     Dates: start: 20201125, end: 20210308
  10. PEMBROLIZUMAB. [Suspect]
     Active Substance: PEMBROLIZUMAB
     Indication: PLEOMORPHIC LEIOMYOSARCOMA
     Dosage: 200 MILLIGRAM, FREQUENCY: D1
     Route: 042
     Dates: start: 20201210
  11. ASPIRIN [ACETYLSALICYLIC ACID] [Concomitant]
     Active Substance: ASPIRIN
     Indication: PROPHYLAXIS
     Dosage: 75 MILLIGRAM, QD
     Route: 048
     Dates: start: 2017, end: 20210308
  12. DOCUSATE SODIUM. [Concomitant]
     Active Substance: DOCUSATE SODIUM
     Indication: CONSTIPATION
     Dosage: 200 MILLIGRAM, BID
     Route: 048
     Dates: start: 2008, end: 2021
  13. GABAPENTIN. [Concomitant]
     Active Substance: GABAPENTIN
     Dosage: 600 MG DAILY (IN THE MORNING)
     Route: 048
     Dates: start: 20201125
  14. GEMCITABINE HYDROCHLORIDE. [Suspect]
     Active Substance: GEMCITABINE HYDROCHLORIDE
     Indication: LEIOMYOSARCOMA
     Dosage: DOSE: 2128 MG, FREQUENCY: D1 AND D8
     Route: 042
     Dates: start: 20201117, end: 20201210
  15. GEMCITABINE HYDROCHLORIDE. [Suspect]
     Active Substance: GEMCITABINE HYDROCHLORIDE
     Dosage: DOSE: 2660 MG, FREQUENCY: D1 AND D8
     Route: 042
     Dates: start: 20201117, end: 20201124
  16. LOSARTAN POTASSIUM. [Suspect]
     Active Substance: LOSARTAN POTASSIUM
     Indication: HYPERTENSION
     Dosage: 50 MILLIGRAM, QD
     Route: 048
     Dates: start: 20201206, end: 20210308
  17. METOCLOPRAMIDE. [Suspect]
     Active Substance: METOCLOPRAMIDE
     Indication: NAUSEA
     Dosage: 10 MG, DAILY
     Route: 048
     Dates: start: 20201206, end: 2021
  18. OXYCODONE [Suspect]
     Active Substance: OXYCODONE
     Dosage: 400 MG, DAILY (QD)
     Route: 048
     Dates: start: 20201105
  19. OXYCONTIN [Suspect]
     Active Substance: OXYCODONE HYDROCHLORIDE
     Dosage: 30 MILLIGRAM, ONCE
     Route: 048
     Dates: start: 20210224
  20. PEMBROLIZUMAB. [Suspect]
     Active Substance: PEMBROLIZUMAB
     Dosage: 200 MG, EVERY 3 WEEKS (Q3W)
     Route: 042
     Dates: start: 20201117, end: 20210304
  21. ACETAMINOPHEN. [Concomitant]
     Active Substance: ACETAMINOPHEN
     Indication: PELVIC PAIN
     Dosage: 1 GRAM, QD/PRN
     Route: 048
     Dates: start: 2008, end: 20210728
  22. ATORVASTATIN [Concomitant]
     Active Substance: ATORVASTATIN
     Indication: CORONARY ARTERY DISEASE
     Dosage: 80 MILLIGRAM, ONCE
     Route: 048
     Dates: start: 2017, end: 20210308
  23. GABAPENTIN. [Concomitant]
     Active Substance: GABAPENTIN
     Dosage: 300 MG DAILY (IN THE MORNING)
     Route: 048
     Dates: start: 20201125
  24. MINERAL OIL. [Concomitant]
     Active Substance: MINERAL OIL
     Indication: RASH
     Dosage: UNK, 3X/DAY (TID)
     Route: 061
     Dates: start: 20201123, end: 2021
  25. LAXIDO [Concomitant]
     Active Substance: POLYETHYLENE GLYCOL 3350\POTASSIUM CHLORIDE\SODIUM BICARBONATE\SODIUM CHLORIDE
     Indication: CONSTIPATION
     Dosage: 1 DF, 2X/DAY ( 1 SACHET, BID/PRN)
     Route: 048
     Dates: start: 2008, end: 20210628
  26. CLOTRIMAZOLE. [Concomitant]
     Active Substance: CLOTRIMAZOLE
     Indication: INTERTRIGO
     Dosage: 2X/DAY (BID)
     Route: 061
     Dates: start: 20201123, end: 20201127
  27. LANSOPRAZOLE. [Concomitant]
     Active Substance: LANSOPRAZOLE
     Indication: GASTROOESOPHAGEAL REFLUX DISEASE
     Dosage: 30 MILLIGRAM, QD
     Route: 048
     Dates: start: 2017, end: 20210308
  28. LIDOCAINE. [Concomitant]
     Active Substance: LIDOCAINE
     Indication: PAIN
     Dosage: 3X/DAY (TID)
     Route: 061
     Dates: start: 20201109, end: 2021
  29. OXYCODONE [Suspect]
     Active Substance: OXYCODONE
     Indication: PELVIC PAIN
     Dosage: 5 MG, PRN
     Route: 048
     Dates: start: 20201105
  30. PEMBROLIZUMAB. [Suspect]
     Active Substance: PEMBROLIZUMAB
     Indication: LEIOMYOSARCOMA
     Dosage: 200 MILLIGRAM, FREQUENCY: D1
     Route: 042
     Dates: start: 20210304
  31. PEMBROLIZUMAB. [Suspect]
     Active Substance: PEMBROLIZUMAB
     Indication: UNDIFFERENTIATED SARCOMA
     Dosage: 200 MG, EVERY 3 WEEKS (Q3W)
     Route: 042
     Dates: start: 20210708, end: 20210708
  32. SENOKOT [Concomitant]
     Active Substance: SENNOSIDES
     Indication: CONSTIPATION
     Dosage: 7.5 MILLIGRAM (ALSO REPORTED AS 2 TABLETS), QD
     Route: 048
     Dates: start: 20200223, end: 20210308
  33. BISOPROLOL FUMARATE. [Suspect]
     Active Substance: BISOPROLOL FUMARATE
     Indication: CORONARY ARTERY DISEASE
     Dosage: 7.5 MILLIGRAM, QD
     Route: 048
     Dates: start: 2017, end: 20210308
  34. ATORVASTATIN [Concomitant]
     Active Substance: ATORVASTATIN
     Dosage: 80 MILLIGRAM, DAILY (QD)
     Route: 048
     Dates: start: 2017

REACTIONS (15)
  - Dyspnoea [Not Recovered/Not Resolved]
  - Accident [Unknown]
  - Dizziness postural [Unknown]
  - Pneumonia [Recovered/Resolved]
  - Cellulitis [Recovered/Resolved]
  - Cardiac failure [Recovered/Resolved]
  - Pyrexia [Unknown]
  - Blood bilirubin increased [Not Recovered/Not Resolved]
  - Pulmonary hypertension [Unknown]
  - Skin infection [Recovered/Resolved]
  - Biliary obstruction [Unknown]
  - Fall [Recovered/Resolved]
  - Urinary retention [Unknown]
  - Pneumonia [Recovered/Resolved]
  - Pancreatic mass [Unknown]

NARRATIVE: CASE EVENT DATE: 20201128
